FAERS Safety Report 23836871 (Version 1)
Quarter: 2024Q2

REPORT INFORMATION
  Report Type: Spontaneous
  Country: US (occurrence: US)
  Receive Date: 20240509
  Receipt Date: 20240509
  Transmission Date: 20240716
  Serious: No
  Sender: FDA-Public Use
  Company Number: US-ALNYLAM PHARMACEUTICALS, INC.-ALN-2024-002608

PATIENT

DRUGS (1)
  1. GIVLAARI [Suspect]
     Active Substance: GIVOSIRAN SODIUM
     Indication: Porphyria acute
     Dosage: UNK
     Route: 065

REACTIONS (8)
  - Porphyria acute [Unknown]
  - Depression [Unknown]
  - Burning sensation [Unknown]
  - Fatigue [Unknown]
  - Myalgia [Unknown]
  - Anxiety [Unknown]
  - Decreased appetite [Unknown]
  - Sleep disorder [Unknown]
